FAERS Safety Report 7908861-6 (Version None)
Quarter: 2011Q4

REPORT INFORMATION
  Report Type: 
  Country: None (occurrence: None)
  Receive Date: 20111111
  Receipt Date: 20111028
  Transmission Date: 20120403
  Serious: Yes (Other)
  Sender: FDA-Public Use
  Company Number: NL-CELGENEUS-114-21880-11102217

PATIENT
  Sex: Male
  Weight: 83 kg

DRUGS (6)
  1. MELPHALAN HYDROCHLORIDE [Suspect]
     Indication: MULTIPLE MYELOMA
     Dosage: 14 MILLIGRAM
     Route: 065
     Dates: start: 20111003
  2. CIPROFLAXACIN [Concomitant]
  3. REVLIMID [Suspect]
     Route: 048
     Dates: start: 20111018
  4. REVLIMID [Suspect]
     Indication: MULTIPLE MYELOMA
     Dosage: 10 MILLIGRAM
     Route: 048
     Dates: start: 20111003, end: 20111013
  5. PREDNISONE TAB [Suspect]
     Indication: MULTIPLE MYELOMA
     Route: 065
     Dates: start: 20111003
  6. CIPROFLAXACIN [Concomitant]
     Indication: MALAISE
     Dosage: 500 MILLIGRAM
     Route: 048
     Dates: start: 20110823, end: 20110928

REACTIONS (1)
  - OSTEITIS [None]
